FAERS Safety Report 25410658 (Version 1)
Quarter: 2025Q2

REPORT INFORMATION
  Report Type: Spontaneous
  Country: DE (occurrence: DE)
  Receive Date: 20250609
  Receipt Date: 20250609
  Transmission Date: 20250717
  Serious: Yes (Other)
  Sender: ORGANON
  Company Number: None

PATIENT
  Age: 74 Year
  Sex: Male
  Weight: 82 kg

DRUGS (6)
  1. SIMVASTATIN [Suspect]
     Active Substance: SIMVASTATIN
     Indication: Type IIa hyperlipidaemia
  2. PANTOPRAZOLE [PANTOPRAZOLE SODIUM] [Concomitant]
     Dosage: DAILY DOSE: 20 MG EVERY 1 DAY
  3. CLOPIDOGREL [Concomitant]
     Active Substance: CLOPIDOGREL BISULFATE
     Dosage: DAILY DOSE: 75 MG EVERY 1 DAY
  4. APIXABAN [Concomitant]
     Active Substance: APIXABAN
     Dosage: 5 MG 1-0-1DAILY DOSE: 10 MG EVERY 1 DAY
  5. TORSEMIDE [Concomitant]
     Active Substance: TORSEMIDE
     Dosage: DAILY DOSE: 5 MG EVERY 1 DAY
  6. PRALUENT [Concomitant]
     Active Substance: ALIROCUMAB
     Route: 058
     Dates: start: 20250123

REACTIONS (1)
  - Hydronephrosis [Unknown]
